FAERS Safety Report 8154194-5 (Version None)
Quarter: 2012Q1

REPORT INFORMATION
  Report Type: 
  Country: None (occurrence: None)
  Receive Date: 20120217
  Receipt Date: 20120217
  Transmission Date: 20120608
  Serious: No
  Sender: FDA-Public Use
  Company Number: None

PATIENT
  Sex: Female
  Weight: 66.5427 kg

DRUGS (1)
  1. LEVOTHYROXINE SODIUM [Suspect]
     Indication: HYPOTHYROIDISM
     Dosage: DAILY ORAL  ~AGE 5
     Route: 048

REACTIONS (3)
  - NAUSEA [None]
  - ABDOMINAL DISCOMFORT [None]
  - VOMITING [None]
